FAERS Safety Report 17099924 (Version 1)
Quarter: 2019Q4

REPORT INFORMATION
  Report Type: Spontaneous
  Country: US (occurrence: US)
  Receive Date: 20191202
  Receipt Date: 20191202
  Transmission Date: 20200122
  Serious: Yes (Other)
  Sender: FDA-Public Use
  Company Number: US-OTSUKA-2019_040198

PATIENT
  Age: 7 Decade
  Sex: Female

DRUGS (2)
  1. ABILIFY [Suspect]
     Active Substance: ARIPIPRAZOLE
     Dosage: 10 MG, QD
     Route: 065
  2. ABILIFY [Suspect]
     Active Substance: ARIPIPRAZOLE
     Indication: PSYCHOTIC DISORDER
     Dosage: 15 MG, QD
     Route: 065

REACTIONS (5)
  - Neoplasm [Unknown]
  - Dementia [Unknown]
  - Drug effective for unapproved indication [Unknown]
  - Back pain [Not Recovered/Not Resolved]
  - Fall [Unknown]
